FAERS Safety Report 13390405 (Version 1)
Quarter: 2017Q1

REPORT INFORMATION
  Report Type: Spontaneous
  Country: US (occurrence: US)
  Receive Date: 20170330
  Receipt Date: 20170330
  Transmission Date: 20170429
  Serious: Yes (Hospitalization)
  Sender: FDA-Public Use
  Company Number: None

PATIENT
  Age: 26 Year
  Sex: Male

DRUGS (1)
  1. GENTAMICIN 40MG FRESENIUS KABI USA, LLC [Suspect]
     Active Substance: GENTAMICIN
     Indication: CYSTIC FIBROSIS
     Route: 055
     Dates: start: 20160811

REACTIONS (1)
  - Hospitalisation [None]
